FAERS Safety Report 5735602-3 (Version None)
Quarter: 2008Q2

REPORT INFORMATION
  Report Type: 
  Country: None (occurrence: None)
  Receive Date: 20080512
  Receipt Date: 20080430
  Transmission Date: 20081010
  Serious: Yes (Other)
  Sender: FDA-Public Use
  Company Number: CA-PFIZER INC-2008038246

PATIENT
  Age: 78 Year
  Sex: Female
  Weight: 76 kg

DRUGS (1)
  1. SUTENT [Suspect]
     Indication: CERVIX CARCINOMA
     Dosage: DAILY DOSE:25MG
     Route: 048
     Dates: start: 20070918, end: 20071014

REACTIONS (2)
  - CHEST PAIN [None]
  - DYSPNOEA [None]
